FAERS Safety Report 17823977 (Version 1)
Quarter: 2020Q2

REPORT INFORMATION
  Report Type: Spontaneous
  Country: US (occurrence: US)
  Receive Date: 20200525
  Receipt Date: 20200525
  Transmission Date: 20200714
  Serious: Yes (Other)
  Sender: FDA-Public Use
  Company Number: None

PATIENT
  Age: 49 Year
  Sex: Female

DRUGS (1)
  1. BIOTE NOT SPECIFIED [Suspect]
     Active Substance: ESTROGENS\TESTOSTERONE
     Indication: HORMONE REPLACEMENT THERAPY
     Dosage: ?          OTHER FREQUENCY:EVERY THREE MONTHS;OTHER ROUTE:PELLET INSERTION?

REACTIONS (3)
  - Hypertrichosis [None]
  - Alopecia [None]
  - Blood cholesterol increased [None]

NARRATIVE: CASE EVENT DATE: 20180418
